FAERS Safety Report 16973565 (Version 2)
Quarter: 2020Q1

REPORT INFORMATION
  Report Type: Spontaneous
  Country: US (occurrence: US)
  Receive Date: 20191030
  Receipt Date: 20200103
  Transmission Date: 20200409
  Serious: No
  Sender: FDA-Public Use
  Company Number: US-PFIZER INC-2019469687

PATIENT
  Age: 51 Year
  Sex: Female

DRUGS (8)
  1. DOXORUBICIN [Concomitant]
     Active Substance: DOXORUBICIN
     Indication: NON-HODGKIN^S LYMPHOMA STAGE III
     Dosage: UNK
  2. VINCRISTINE [Concomitant]
     Active Substance: VINCRISTINE
     Indication: NON-HODGKIN^S LYMPHOMA STAGE III
     Dosage: UNK
  3. TAXOTERE [Suspect]
     Active Substance: DOCETAXEL
     Indication: INVASIVE DUCTAL BREAST CARCINOMA
     Dosage: UNK, CYCLIC (06 CYCLES EVERY THREE WEEKS)
     Route: 042
     Dates: start: 20170126, end: 20170511
  4. PREDNISONE. [Concomitant]
     Active Substance: PREDNISONE
     Indication: NON-HODGKIN^S LYMPHOMA STAGE III
     Dosage: UNK
  5. PARAPLATIN [Concomitant]
     Active Substance: CARBOPLATIN
     Indication: INVASIVE DUCTAL BREAST CARCINOMA
     Dosage: UNK
     Route: 042
  6. CYCLOPHOSPHAMIDE. [Concomitant]
     Active Substance: CYCLOPHOSPHAMIDE
     Indication: NON-HODGKIN^S LYMPHOMA STAGE III
     Dosage: UNK
  7. HERCEPTIN [Concomitant]
     Active Substance: TRASTUZUMAB
     Indication: INVASIVE DUCTAL BREAST CARCINOMA
     Dosage: UNK
     Route: 042
  8. DOCETAXEL. [Suspect]
     Active Substance: DOCETAXEL
     Indication: INVASIVE DUCTAL BREAST CARCINOMA
     Dosage: UNK, CYCLIC (06 CYCLES EVERY THREE WEEKS)
     Dates: start: 20170126, end: 20170511

REACTIONS (5)
  - Alopecia [Not Recovered/Not Resolved]
  - Madarosis [Not Recovered/Not Resolved]
  - Hair colour changes [Not Recovered/Not Resolved]
  - Hair texture abnormal [Not Recovered/Not Resolved]
  - Hair disorder [Not Recovered/Not Resolved]

NARRATIVE: CASE EVENT DATE: 20170309
